FAERS Safety Report 7787681-X (Version None)
Quarter: 2011Q3

REPORT INFORMATION
  Report Type: 
  Country: None (occurrence: None)
  Receive Date: 20110929
  Receipt Date: 20110920
  Transmission Date: 20111222
  Serious: Yes (Hospitalization)
  Sender: FDA-Public Use
  Company Number: US-ASTRAZENECA-2011SE42671

PATIENT
  Age: 47 Year
  Sex: Female

DRUGS (1)
  1. NEXIUM [Suspect]
     Route: 048

REACTIONS (5)
  - GASTROOESOPHAGEAL REFLUX DISEASE [None]
  - ABDOMINAL DISTENSION [None]
  - GASTRIC POLYPS [None]
  - CHOLECYSTITIS [None]
  - SENSATION OF FOREIGN BODY [None]
